FAERS Safety Report 12219151 (Version 1)
Quarter: 2016Q1

REPORT INFORMATION
  Report Type: Report from Study
  Country: FR (occurrence: FR)
  Receive Date: 20160329
  Receipt Date: 20160329
  Transmission Date: 20160526
  Serious: Yes (Hospitalization)
  Sender: FDA-Public Use
  Company Number: FR-BIOGEN-2013BI120627

PATIENT
  Age: 52 Year
  Sex: Female

DRUGS (10)
  1. CODEINE [Concomitant]
     Active Substance: CODEINE
  2. GYLENYA [Concomitant]
     Indication: MULTIPLE SCLEROSIS RELAPSE
     Dates: start: 20130208
  3. DANTRIUM [Concomitant]
     Active Substance: DANTROLENE SODIUM
     Indication: MUSCLE SPASTICITY
     Dates: start: 20100201
  4. STILNOX [Concomitant]
     Active Substance: ZOLPIDEM TARTRATE
     Indication: INSOMNIA
     Dates: start: 20070101
  5. DITROPAN [Concomitant]
     Active Substance: OXYBUTYNIN CHLORIDE
     Indication: MUSCLE SPASTICITY
     Dates: start: 20100601
  6. DEROXATE [Concomitant]
     Indication: DEPRESSION
     Dates: start: 20070101
  7. DAFALGAN [Concomitant]
     Active Substance: ACETAMINOPHEN
  8. COLECALCIFEROL [Concomitant]
     Active Substance: CHOLECALCIFEROL
     Indication: MULTIPLE SCLEROSIS
     Dates: start: 20050101
  9. FAMPYRA [Suspect]
     Active Substance: DALFAMPRIDINE
     Indication: GAIT DISTURBANCE
     Route: 048
     Dates: start: 20130423, end: 20130506
  10. UROREC [Concomitant]
     Active Substance: SILODOSIN

REACTIONS (1)
  - Multiple sclerosis relapse [Recovered/Resolved]

NARRATIVE: CASE EVENT DATE: 20131110
